FAERS Safety Report 18504694 (Version 1)
Quarter: 2020Q4

REPORT INFORMATION
  Report Type: Spontaneous
  Country: US (occurrence: US)
  Receive Date: 20201115
  Receipt Date: 20201115
  Transmission Date: 20210114
  Serious: No
  Sender: FDA-Public Use
  Company Number: US-ASTRAZENECA-2020SF49094

PATIENT
  Age: 25519 Day
  Sex: Female
  Weight: 65.8 kg

DRUGS (5)
  1. LEVOTHYROXINE. [Concomitant]
     Active Substance: LEVOTHYROXINE
     Indication: THYROID OPERATION
     Dosage: 75
     Route: 048
  2. MULTIVITAMIN [Concomitant]
     Active Substance: VITAMINS
     Dosage: UNKNOWN
     Route: 065
  3. MIRTAZIPINE [Concomitant]
     Active Substance: MIRTAZAPINE
     Indication: APPETITE DISORDER
     Route: 048
     Dates: start: 201909
  4. TAGRISSO [Suspect]
     Active Substance: OSIMERTINIB
     Indication: LUNG CARCINOMA CELL TYPE UNSPECIFIED STAGE IV
     Route: 048
     Dates: start: 201907
  5. AMLODIPINE [Concomitant]
     Active Substance: AMLODIPINE BESYLATE
     Indication: HYPERTENSION
     Route: 048
     Dates: start: 2015

REACTIONS (1)
  - Skin bacterial infection [Unknown]

NARRATIVE: CASE EVENT DATE: 20201027
